FAERS Safety Report 8468046 (Version 5)
Quarter: 2012Q4

REPORT INFORMATION
  Report Type: 
  Country: JP (occurrence: JP)
  Receive Date: 20120320
  Receipt Date: 20120921
  Transmission Date: 20130627
  Serious: Yes (Other)
  Sender: FDA-Public Use
  Company Number: JP-ABBOTT-12P-087-0915814-00

PATIENT
  Age: 18 Year
  Sex: Female

DRUGS (8)
  1. CLARITHROMYCIN [Suspect]
     Indication: UPPER RESPIRATORY TRACT INFECTION
     Route: 048
  2. CLARITHROMYCIN [Suspect]
     Indication: PNEUMONIA PRIMARY ATYPICAL
  3. ACETAMINOPHEN [Suspect]
     Indication: PYREXIA
     Route: 054
  4. CEFAZOLIN SODIUM [Concomitant]
     Indication: PRODUCT USED FOR UNKNOWN INDICATION
  5. CEFTRIAXONE SODIUM [Concomitant]
  6. AMPICILLIN [Concomitant]
     Indication: PYELONEPHRITIS
  7. CLINDAMYCIN [Concomitant]
     Indication: PYELONEPHRITIS
  8. GENTAMICIN [Concomitant]
     Indication: PYELONEPHRITIS

REACTIONS (2)
  - Serratia sepsis [Unknown]
  - Premature labour [Unknown]
